FAERS Safety Report 8172020-5 (Version None)
Quarter: 2012Q1

REPORT INFORMATION
  Report Type: 
  Country: None (occurrence: None)
  Receive Date: 20120228
  Receipt Date: 20120220
  Transmission Date: 20120608
  Serious: Yes (Other)
  Sender: FDA-Public Use
  Company Number: PHHY2012DK015239

PATIENT
  Sex: Female
  Weight: 95 kg

DRUGS (4)
  1. GLIMEPIRIDE [Concomitant]
     Indication: DIABETES MELLITUS
     Dosage: UNK UKN, UNK
     Route: 048
     Dates: start: 20070501
  2. LISINOPRIL [Concomitant]
     Indication: HYPERTENSION
     Dosage: UNK UKN, UNK
     Route: 048
     Dates: start: 20070501
  3. METFORMIN HCL [Concomitant]
     Indication: DIABETES MELLITUS
     Dosage: UNK UKN, UNK
     Route: 048
     Dates: start: 20070501
  4. DICLOXACILLIN [Suspect]
     Indication: INFLAMMATION
     Dosage: 500 MG
     Route: 048
     Dates: start: 20111020, end: 20111027

REACTIONS (1)
  - VULVOVAGINAL MYCOTIC INFECTION [None]
